FAERS Safety Report 23810522 (Version 1)
Quarter: 2024Q2

REPORT INFORMATION
  Report Type: Spontaneous
  Country: US (occurrence: None)
  Receive Date: 20240501
  Receipt Date: 20240501
  Transmission Date: 20240715
  Serious: Yes (Hospitalization, Disabling)
  Sender: FDA-Public Use
  Company Number: None

PATIENT
  Age: 86 Year
  Sex: Female
  Weight: 65.25 kg

DRUGS (1)
  1. PROLIA [Suspect]
     Active Substance: DENOSUMAB
     Dates: start: 20130101, end: 20231116

REACTIONS (4)
  - Pain [None]
  - Pyrexia [None]
  - Paralysis [None]
  - Skin hypertrophy [None]

NARRATIVE: CASE EVENT DATE: 20231116
